FAERS Safety Report 4725067-2 (Version None)
Quarter: 2005Q3

REPORT INFORMATION
  Report Type: 
  Country: None (occurrence: None)
  Receive Date: 20050721
  Receipt Date: 20050708
  Transmission Date: 20060218
  Serious: Yes (Hospitalization, Other)
  Sender: FDA-Public Use
  Company Number: 2005089780

PATIENT
  Sex: Female

DRUGS (3)
  1. DETROL LA [Suspect]
     Indication: INCONTINENCE
     Dosage: 2 MG (2 MG, 1 IN 1 D), ORAL
     Route: 048
     Dates: start: 20030101
  2. TERAZOSIN (TERAZOSIN) [Concomitant]
  3. ZETIA [Concomitant]

REACTIONS (4)
  - CEREBRAL HAEMORRHAGE [None]
  - HYPOTENSION [None]
  - POLLAKIURIA [None]
  - WEIGHT DECREASED [None]
